FAERS Safety Report 8919129 (Version 3)
Quarter: 2013Q2

REPORT INFORMATION
  Report Type: Spontaneous
  Country: US (occurrence: US)
  Receive Date: 20121121
  Receipt Date: 20130429
  Transmission Date: 20140414
  Serious: Yes (Hospitalization, Disabling, Other)
  Sender: FDA-Public Use
  Company Number: US-009507513-1211USA008060

PATIENT
  Sex: Female

DRUGS (3)
  1. FOSAMAX [Suspect]
     Indication: BONE LOSS
     Dosage: UNK
     Dates: start: 1998, end: 2005
  2. BONIVA [Suspect]
     Indication: BONE LOSS
     Dosage: UNK
     Dates: start: 2007, end: 2008
  3. CALCIUM (UNSPECIFIED) (+) VITAMIN D (UNSPECIFIED) [Concomitant]

REACTIONS (21)
  - Femur fracture [Not Recovered/Not Resolved]
  - Intramedullary rod insertion [Unknown]
  - Femur fracture [Not Recovered/Not Resolved]
  - Intramedullary rod insertion [Unknown]
  - Osteoporosis [Not Recovered/Not Resolved]
  - Multiple fractures [Not Recovered/Not Resolved]
  - Femur fracture [Not Recovered/Not Resolved]
  - Low turnover osteopathy [Not Recovered/Not Resolved]
  - Femoral neck fracture [Unknown]
  - Femoral neck fracture [Unknown]
  - Surgery [Unknown]
  - Fracture pain [Unknown]
  - Knee arthroplasty [Unknown]
  - Radius fracture [Unknown]
  - Fracture delayed union [Unknown]
  - Depression [Unknown]
  - Anxiety [Unknown]
  - Pelvic fracture [Unknown]
  - Tooth extraction [Unknown]
  - Arthritis [Unknown]
  - Back pain [Not Recovered/Not Resolved]
